FAERS Safety Report 7331360-X (Version None)
Quarter: 2011Q1

REPORT INFORMATION
  Report Type: 
  Country: None (occurrence: None)
  Receive Date: 20110304
  Receipt Date: 20100823
  Transmission Date: 20110831
  Serious: Yes (Other)
  Sender: FDA-Public Use
  Company Number: US-BAYER-201023616NA

PATIENT
  Sex: Female
  Weight: 86.364 kg

DRUGS (9)
  1. OCELLA [Suspect]
     Indication: CONTRACEPTION
     Dates: start: 20061001, end: 20090101
  2. YAZ [Suspect]
     Indication: CONTRACEPTION
     Dates: start: 20061001, end: 20090101
  3. ASCORBIC ACID [Concomitant]
  4. NSAID'S [Concomitant]
     Dates: start: 20000101
  5. ANTI-ASTHMATICS [Concomitant]
     Indication: ASTHMA
  6. YASMIN [Suspect]
     Indication: CONTRACEPTION
     Route: 048
     Dates: start: 20061001, end: 20090101
  7. TOPAMAX [Concomitant]
  8. LEXAPRO [Concomitant]
  9. HYDROCHLOROTHIAZIDE [Concomitant]
     Dates: start: 20030101

REACTIONS (6)
  - NAUSEA [None]
  - BACK PAIN [None]
  - CHOLELITHIASIS [None]
  - ABDOMINAL PAIN [None]
  - ABDOMINAL PAIN UPPER [None]
  - CHOLECYSTITIS CHRONIC [None]
